FAERS Safety Report 18617884 (Version 2)
Quarter: 2021Q1

REPORT INFORMATION
  Report Type: Spontaneous
  Country: US (occurrence: US)
  Receive Date: 20201215
  Receipt Date: 20210201
  Transmission Date: 20210419
  Serious: Yes (Hospitalization)
  Sender: FDA-Public Use
  Company Number: US-RECORDATI RARE DISEASES-2102999

PATIENT
  Age: 49 Year
  Sex: Female

DRUGS (1)
  1. SIGNIFOR [Suspect]
     Active Substance: PASIREOTIDE DIASPARTATE
     Indication: CUSHING^S SYNDROME

REACTIONS (3)
  - Procedural nausea [Unknown]
  - Surgery [Unknown]
  - Contusion [Unknown]

NARRATIVE: CASE EVENT DATE: 202006
